FAERS Safety Report 21176558 (Version 1)
Quarter: 2022Q3

REPORT INFORMATION
  Report Type: Spontaneous
  Country: US (occurrence: US)
  Receive Date: 20220805
  Receipt Date: 20220805
  Transmission Date: 20221026
  Serious: No
  Sender: FDA-Public Use
  Company Number: US-ALLERGAN-2215661US

PATIENT
  Age: 67 Year
  Sex: Female

DRUGS (1)
  1. VUITY [Suspect]
     Active Substance: PILOCARPINE HYDROCHLORIDE
     Indication: Presbyopia
     Dosage: 1 GTT
     Dates: start: 20220321

REACTIONS (1)
  - Vitreoretinal traction syndrome [Recovering/Resolving]

NARRATIVE: CASE EVENT DATE: 20220321
